FAERS Safety Report 7796893-0 (Version None)
Quarter: 2011Q4

REPORT INFORMATION
  Report Type: 
  Country: None (occurrence: None)
  Receive Date: 20111003
  Receipt Date: 20110914
  Transmission Date: 20120403
  Serious: Yes (Death)
  Sender: FDA-Public Use
  Company Number: US-ACCORD-010707

PATIENT
  Age: 64 Year
  Sex: Female

DRUGS (3)
  1. BEVACIZUMAB(BEVACIZUMAB) [Suspect]
     Indication: OLIGODENDROGLIOMA
  2. TEMOZOLOMIDE [Concomitant]
  3. IRINOTECAN HCL [Suspect]
     Indication: OLIGODENDROGLIOMA

REACTIONS (7)
  - HYDROCEPHALUS [None]
  - COMA [None]
  - WOUND INFECTION [None]
  - INTRACRANIAL HYPOTENSION [None]
  - KLEBSIELLA TEST POSITIVE [None]
  - CITROBACTER TEST POSITIVE [None]
  - ENTEROBACTER TEST POSITIVE [None]
